FAERS Safety Report 5814722-9 (Version None)
Quarter: 2008Q3

REPORT INFORMATION
  Report Type: 
  Country: None (occurrence: None)
  Receive Date: 20080718
  Receipt Date: 20080522
  Transmission Date: 20090109
  Serious: No
  Sender: FDA-Public Use
  Company Number: US-KINGPHARMUSA00001-K200800598

PATIENT

DRUGS (2)
  1. LEVOXYL [Suspect]
     Dosage: UNK, UNK
     Route: 048
     Dates: start: 20010101
  2. LEVOXYL [Suspect]
     Dosage: 112 MCG, UNK
     Route: 048
     Dates: end: 20080519

REACTIONS (4)
  - HYPOAESTHESIA [None]
  - PAIN IN EXTREMITY [None]
  - PARAESTHESIA [None]
  - TREMOR [None]
